FAERS Safety Report 5444505-3 (Version None)
Quarter: 2007Q3

REPORT INFORMATION
  Report Type: 
  Country: None (occurrence: None)
  Receive Date: 20070828
  Receipt Date: 20070820
  Transmission Date: 20080115
  Serious: Yes (Other)
  Sender: FDA-Public Use
  Company Number: 2007321574

PATIENT
  Age: 5 Year
  Sex: Female
  Weight: 36 kg

DRUGS (2)
  1. LISTERINE AGENT COOL BLUE BUBBLE BLAST (NO ACTIVE INGREDIENT) [Suspect]
     Indication: DENTAL PLAQUE
     Dosage: 10 ML 2 TO 3 TIMES DAILY, ORAL
     Route: 048
     Dates: start: 20070101, end: 20070516
  2. CLEOCIN (CLINDAMYCIN HYDROCHLORIDE) [Concomitant]

REACTIONS (4)
  - BACTERIAL INFECTION [None]
  - BREATH ODOUR [None]
  - SOMNOLENCE [None]
  - TOOTH ABSCESS [None]
